FAERS Safety Report 10094455 (Version 1)
Quarter: 2014Q2

REPORT INFORMATION
  Report Type: Report from Study
  Country: IL (occurrence: IL)
  Receive Date: 20140422
  Receipt Date: 20140422
  Transmission Date: 20141212
  Serious: Yes (Hospitalization, Other)
  Sender: FDA-Public Use
  Company Number: IL-BAYER-2014-054920

PATIENT
  Age: 37 Year
  Sex: Female

DRUGS (1)
  1. MIRENA [Suspect]
     Dosage: 20 MCG/24HR, CONT
     Route: 015
     Dates: start: 201307, end: 20130804

REACTIONS (11)
  - Pregnancy with contraceptive device [Recovered/Resolved]
  - Vaginal haemorrhage [None]
  - Abdominal pain [None]
  - Abdominal discomfort [None]
  - Abdominal distension [None]
  - Presyncope [None]
  - Tachycardia [None]
  - Genital haemorrhage [None]
  - Drug ineffective [Recovered/Resolved]
  - Abdominal pain [Recovered/Resolved]
  - Ascites [None]
